FAERS Safety Report 5520386-4 (Version None)
Quarter: 2007Q4

REPORT INFORMATION
  Report Type: 
  Country: None (occurrence: None)
  Receive Date: 20071116
  Receipt Date: 20071116
  Transmission Date: 20080405
  Serious: Yes (Other)
  Sender: FDA-Public Use
  Company Number: None

PATIENT
  Age: 33 Year
  Sex: Female
  Weight: 68.4932 kg

DRUGS (1)
  1. KENALOG [Suspect]
     Indication: INTERVERTEBRAL DISC PROTRUSION
     Dosage: 80MG 1X EPIDURAL
     Route: 008
     Dates: start: 20071002

REACTIONS (6)
  - ARTHRALGIA [None]
  - FATIGUE [None]
  - HEADACHE [None]
  - INJECTION SITE IRRITATION [None]
  - MENORRHAGIA [None]
  - MOOD SWINGS [None]
